FAERS Safety Report 7654300-2 (Version None)
Quarter: 2011Q3

REPORT INFORMATION
  Report Type: 
  Country: None (occurrence: None)
  Receive Date: 20110728
  Receipt Date: 20110714
  Transmission Date: 20111222
  Serious: Yes (Other)
  Sender: FDA-Public Use
  Company Number: RU-1187131

PATIENT
  Sex: Female

DRUGS (1)
  1. BETOPTIC [Suspect]
     Indication: GLAUCOMA
     Dosage: (OPHTHALMIC)
     Route: 047

REACTIONS (3)
  - MYDRIASIS [None]
  - EYE PAIN [None]
  - INTRAOCULAR PRESSURE INCREASED [None]
